FAERS Safety Report 12108748 (Version 2)
Quarter: 2016Q2

REPORT INFORMATION
  Report Type: Spontaneous
  Country: US (occurrence: US)
  Receive Date: 20160224
  Receipt Date: 20160415
  Transmission Date: 20160815
  Serious: Yes (Other)
  Sender: FDA-Public Use
  Company Number: US-BAYER-2016-034038

PATIENT
  Age: 79 Year
  Sex: Female
  Weight: 56.69 kg

DRUGS (2)
  1. OXYBUTYNIN [Suspect]
     Active Substance: OXYBUTYNIN
  2. MIRALAX [Suspect]
     Active Substance: POLYETHYLENE GLYCOL 3350
     Indication: CONSTIPATION
     Dosage: 1.5 DF, QD
     Route: 048

REACTIONS (3)
  - Product use issue [None]
  - Product preparation error [None]
  - Haematochezia [Recovering/Resolving]

NARRATIVE: CASE EVENT DATE: 2016
